FAERS Safety Report 6771518-1 (Version None)
Quarter: 2010Q2

REPORT INFORMATION
  Report Type: 
  Country: None (occurrence: None)
  Receive Date: 20100616
  Receipt Date: 20100611
  Transmission Date: 20101027
  Serious: Yes (Death)
  Sender: FDA-Public Use
  Company Number: CO-ROCHE-705541

PATIENT
  Sex: Male

DRUGS (2)
  1. CELLCEPT [Suspect]
     Indication: HEPATITIS C
     Route: 048
     Dates: start: 20060111, end: 20100518
  2. PEGASYS [Suspect]
     Indication: HEPATITIS C
     Dosage: FREQUENCY: EVERY WEEK, FORM: NOT PROVIDED
     Route: 058
     Dates: start: 20091020, end: 20100518

REACTIONS (1)
  - DISEASE PROGRESSION [None]
